FAERS Safety Report 8814227 (Version 1)
Quarter: 2012Q4

REPORT INFORMATION
  Report Type: 
  Country: US (occurrence: US)
  Receive Date: 20120928
  Receipt Date: 20120928
  Transmission Date: 20130627
  Serious: Yes (Hospitalization)
  Sender: FDA-Public Use
  Company Number: US-BAYER-2012-099288

PATIENT
  Age: 21 Year
  Sex: Female
  Weight: 79.37 kg

DRUGS (5)
  1. YASMIN [Suspect]
  2. YAZ [Suspect]
  3. ACETAMINOPHEN W/OXYCODONE [Concomitant]
     Dosage: UNK
     Dates: start: 20110506
  4. BISACODYL [Concomitant]
     Dosage: UNK
     Dates: start: 20110506
  5. PERCOCET [Concomitant]

REACTIONS (1)
  - Pulmonary embolism [Recovered/Resolved]
